FAERS Safety Report 24035775 (Version 4)
Quarter: 2025Q1

REPORT INFORMATION
  Report Type: Spontaneous
  Country: FR (occurrence: FR)
  Receive Date: 20240701
  Receipt Date: 20250123
  Transmission Date: 20250409
  Serious: No
  Sender: PFIZER
  Company Number: FR-PFIZER INC-202400199417

PATIENT
  Age: 5 Year
  Sex: Female

DRUGS (1)
  1. ENBREL [Suspect]
     Active Substance: ETANERCEPT

REACTIONS (2)
  - Injection site bruising [Unknown]
  - Injection site pain [Unknown]
